FAERS Safety Report 10005863 (Version 2)
Quarter: 2014Q1

REPORT INFORMATION
  Report Type: Spontaneous
  Country: GB (occurrence: GB)
  Receive Date: 20140313
  Receipt Date: 20140326
  Transmission Date: 20141002
  Serious: Yes (Other)
  Sender: FDA-Public Use
  Company Number: GB-BEH-2014041154

PATIENT
  Age: 39 Year
  Sex: Female

DRUGS (2)
  1. IVIG [Suspect]
     Indication: SYSTEMIC LUPUS ERYTHEMATOSUS
     Dosage: ONE CYCLE
     Route: 042
  2. IVIG [Suspect]
     Indication: NEUROPATHY PERIPHERAL
     Dosage: ONE CYCLE
     Route: 042

REACTIONS (3)
  - Infarction [Unknown]
  - Finger amputation [Unknown]
  - Drug ineffective for unapproved indication [Not Recovered/Not Resolved]
